FAERS Safety Report 5848039-3 (Version None)
Quarter: 2008Q3

REPORT INFORMATION
  Report Type: 
  Country: None (occurrence: None)
  Receive Date: 20080814
  Receipt Date: 20080804
  Transmission Date: 20090109
  Serious: Yes (Hospitalization, Other)
  Sender: FDA-Public Use
  Company Number: 2008AP001855

PATIENT
  Age: 33 Year
  Sex: Female

DRUGS (4)
  1. CITALOPRAM HYDROBROMIDE [Suspect]
     Indication: DEPRESSION
     Dosage: 20 MG;,
  2. QUETIAPINE FUMARATE [Suspect]
     Indication: ANXIETY
     Dosage: 25 MG; HS 150 MG; HS
  3. INTERFERON ALFA (INTERFERON ALFA) [Concomitant]
  4. RIBAVIRIN [Concomitant]

REACTIONS (7)
  - AGITATION [None]
  - ASTHENIA [None]
  - CONDITION AGGRAVATED [None]
  - DISTURBANCE IN ATTENTION [None]
  - MANIA [None]
  - MENTAL DISORDER [None]
  - SEDATION [None]
